FAERS Safety Report 6286683-2 (Version None)
Quarter: 2009Q3

REPORT INFORMATION
  Report Type: 
  Country: None (occurrence: None)
  Receive Date: 20090728
  Receipt Date: 20090724
  Transmission Date: 20100115
  Serious: Yes (Death)
  Sender: FDA-Public Use
  Company Number: PHEH2009US06778

PATIENT
  Sex: Male

DRUGS (1)
  1. GLEEVEC [Suspect]
     Indication: COLORECTAL CANCER
     Dosage: 400 MG, QD
     Route: 048
     Dates: start: 20070515, end: 20080620

REACTIONS (1)
  - COLON CANCER METASTATIC [None]
